FAERS Safety Report 11546474 (Version 1)
Quarter: 2015Q3

REPORT INFORMATION
  Report Type: Spontaneous
  Country: US (occurrence: US)
  Receive Date: 20150924
  Receipt Date: 20150924
  Transmission Date: 20151125
  Serious: No
  Sender: FDA-Public Use
  Company Number: US-GE HEALTHCARE MEDICAL DIAGNOSTICS-M123-PR-1409L-0011

PATIENT
  Age: 36 Year
  Sex: Male

DRUGS (2)
  1. ADREVIEW [Suspect]
     Active Substance: IOBENGUANE I-123
     Indication: PRODUCT USED FOR UNKNOWN INDICATION
     Route: 042
  2. ADREVIEW [Suspect]
     Active Substance: IOBENGUANE I-123
     Indication: DIAGNOSTIC PROCEDURE

REACTIONS (4)
  - Incorrect route of drug administration [Recovered/Resolved]
  - Erythema [Recovered/Resolved]
  - Radioisotope scan abnormal [Recovered/Resolved]
  - Paraesthesia [Recovered/Resolved]
